FAERS Safety Report 9080789 (Version 1)
Quarter: 2013Q1

REPORT INFORMATION
  Report Type: Report from Study
  Country: US (occurrence: US)
  Receive Date: 20130130
  Receipt Date: 20130130
  Transmission Date: 20140127
  Serious: No
  Sender: FDA-Public Use
  Company Number: US-ABBOTT-12P-163-0975299-00

PATIENT
  Age: 27 Year
  Sex: Female

DRUGS (8)
  1. HUMIRA [Suspect]
     Indication: CROHN^S DISEASE
     Dates: start: 20120822
  2. IMURAN [Concomitant]
     Indication: CROHN^S DISEASE
     Route: 048
  3. AZURETTE [Concomitant]
     Indication: CONTRACEPTION
     Route: 048
  4. MULTIVITAMIN [Concomitant]
     Indication: ROUTINE HEALTH MAINTENANCE
  5. CALCIUM + D [Concomitant]
     Indication: OSTEOPENIA
     Dosage: 600MG + D IU
     Route: 048
  6. FOLIC ACID [Concomitant]
     Indication: ROUTINE HEALTH MAINTENANCE
     Route: 048
  7. VITAMIN B-12 [Concomitant]
     Indication: ROUTINE HEALTH MAINTENANCE
     Route: 060
  8. MIGRELIEF [Concomitant]
     Indication: MIGRAINE PROPHYLAXIS
     Route: 048

REACTIONS (7)
  - Malaise [Recovered/Resolved]
  - Influenza like illness [Recovered/Resolved]
  - Pain [Recovered/Resolved]
  - Nausea [Recovered/Resolved]
  - Arthralgia [Recovered/Resolved]
  - Wrong technique in drug usage process [Recovered/Resolved]
  - Incorrect dose administered [Recovered/Resolved]
